FAERS Safety Report 5646589-6 (Version None)
Quarter: 2008Q1

REPORT INFORMATION
  Report Type: 
  Country: None (occurrence: None)
  Receive Date: 20080303
  Receipt Date: 20080225
  Transmission Date: 20080703
  Serious: Yes (Death, Hospitalization, Other)
  Sender: FDA-Public Use
  Company Number: PHHY2008JP02144

PATIENT
  Age: 67 Year
  Sex: Female

DRUGS (4)
  1. GLEEVEC [Suspect]
     Indication: CHRONIC MYELOID LEUKAEMIA
     Dosage: 300 MG, QD
     Route: 048
     Dates: start: 20000101
  2. LASIX [Concomitant]
     Dosage: 1 DF, UNK
     Route: 048
     Dates: start: 20000101, end: 20080101
  3. ANTIBIOTICS [Concomitant]
  4. BAKTAR [Concomitant]

REACTIONS (8)
  - C-REACTIVE PROTEIN INCREASED [None]
  - DYSPNOEA [None]
  - FALL [None]
  - HYPOXIA [None]
  - LUNG INFECTION [None]
  - OEDEMA [None]
  - SUBARACHNOID HAEMORRHAGE [None]
  - WHITE BLOOD CELL COUNT DECREASED [None]
